FAERS Safety Report 10039172 (Version 1)
Quarter: 2014Q1

REPORT INFORMATION
  Report Type: Spontaneous
  Country: US (occurrence: None)
  Receive Date: 20140306
  Receipt Date: 20140306
  Transmission Date: 20141002
  Serious: Yes (Other)
  Sender: FDA-Public Use
  Company Number: 163-21880-13062147

PATIENT
  Age: 61 Year
  Sex: Female

DRUGS (2)
  1. REVLIMID [Suspect]
     Indication: MYELODYSPLASTIC SYNDROME
     Dosage: 10 MG, 28 IN 28 D, PO
     Route: 048
     Dates: start: 20130423, end: 2013
  2. ASA (ACETYLSALICYLIC ACID) UNKNOWN [Concomitant]

REACTIONS (1)
  - Platelet count decreased [None]
